FAERS Safety Report 23032762 (Version 2)
Quarter: 2024Q4

REPORT INFORMATION
  Report Type: Report from Study
  Country: CA (occurrence: CA)
  Receive Date: 20231005
  Receipt Date: 20241004
  Transmission Date: 20250114
  Serious: Yes (Death, Other)
  Sender: SANDOZ
  Company Number: CA-002147023-NVSC2023CA111551

PATIENT
  Sex: Male
  Weight: 75 kg

DRUGS (3)
  1. PIRFENIDONE [Suspect]
     Active Substance: PIRFENIDONE
     Indication: Pulmonary fibrosis
     Dosage: 2403 MG
     Route: 048
  2. PIRFENIDONE [Suspect]
     Active Substance: PIRFENIDONE
     Indication: Idiopathic pulmonary fibrosis
     Dosage: 801 MG
     Route: 048
     Dates: start: 20210827
  3. VENTOLIN [Concomitant]
     Active Substance: ALBUTEROL SULFATE
     Indication: Product used for unknown indication
     Dosage: UNK (4 PUFFS ADMINISTERED)
     Route: 065

REACTIONS (4)
  - Death [Fatal]
  - Interstitial lung disease [Unknown]
  - Haemoglobin decreased [Unknown]
  - Product dispensing error [Unknown]
